FAERS Safety Report 8511062-4 (Version None)
Quarter: 2012Q3

REPORT INFORMATION
  Report Type: 
  Country: None (occurrence: None)
  Receive Date: 20120716
  Receipt Date: 20120712
  Transmission Date: 20120928
  Serious: Yes (Other)
  Sender: FDA-Public Use
  Company Number: US-BAYER-2012-070003

PATIENT
  Age: 50 Year
  Sex: Female

DRUGS (1)
  1. MAGNEVIST [Suspect]
     Dosage: 10 ML, UNK
     Dates: start: 20120601

REACTIONS (2)
  - BLOOD MERCURY ABNORMAL [None]
  - DRUG SCREEN POSITIVE [None]
